FAERS Safety Report 14913985 (Version 1)
Quarter: 2018Q2

REPORT INFORMATION
  Report Type: Spontaneous
  Country: US (occurrence: US)
  Receive Date: 20180518
  Receipt Date: 20180518
  Transmission Date: 20180711
  Serious: No
  Sender: FDA-Public Use
  Company Number: US-TEVA-2018-US-892086

PATIENT
  Sex: Male

DRUGS (1)
  1. FAMCICLOVIR. [Suspect]
     Active Substance: FAMCICLOVIR
     Indication: PROPHYLAXIS
     Route: 065
     Dates: start: 201804

REACTIONS (4)
  - Rash [Unknown]
  - Blister [Unknown]
  - Burning sensation [Unknown]
  - Skin exfoliation [Unknown]
